FAERS Safety Report 23970758 (Version 1)
Quarter: 2024Q2

REPORT INFORMATION
  Report Type: Report from Study
  Country: US (occurrence: None)
  Receive Date: 20240613
  Receipt Date: 20240613
  Transmission Date: 20240716
  Serious: Yes (Other)
  Sender: FDA-Public Use
  Company Number: 2024A133919

PATIENT
  Sex: Female

DRUGS (16)
  1. FASENRA [Suspect]
     Active Substance: BENRALIZUMAB
     Indication: Dermatitis atopic
     Route: 058
  2. ATORVASTATIN [Concomitant]
     Active Substance: ATORVASTATIN
  3. BACLOFEN [Concomitant]
     Active Substance: BACLOFEN
  4. BOTOX [Concomitant]
     Active Substance: ONABOTULINUMTOXINA
  5. CARBAMAZEPINE [Concomitant]
     Active Substance: CARBAMAZEPINE
  6. CLOPIDOGREL [Concomitant]
     Active Substance: CLOPIDOGREL BISULFATE
  7. GEMTESA [Concomitant]
     Active Substance: VIBEGRON
  8. JARDIANCE [Concomitant]
     Active Substance: EMPAGLIFLOZIN
  9. METOPROLOL [Concomitant]
     Active Substance: METOPROLOL
  10. MOUNJARO [Concomitant]
     Active Substance: TIRZEPATIDE
  11. PIROXICAM [Concomitant]
     Active Substance: PIROXICAM
  12. POTASSIUM CH TBC [Concomitant]
  13. PREGABALIN [Concomitant]
     Active Substance: PREGABALIN
  14. PYRIDOSTIGMI [Concomitant]
  15. SPIRONOLACTO [Concomitant]
  16. VASCEPA [Concomitant]
     Active Substance: ICOSAPENT ETHYL

REACTIONS (3)
  - Pneumonitis [Not Recovered/Not Resolved]
  - Pleurisy [Not Recovered/Not Resolved]
  - Insurance issue [Not Recovered/Not Resolved]
